FAERS Safety Report 7948397-X (Version None)
Quarter: 2011Q4

REPORT INFORMATION
  Report Type: 
  Country: None (occurrence: None)
  Receive Date: 20111130
  Receipt Date: 20111129
  Transmission Date: 20120403
  Serious: Yes (Death)
  Sender: FDA-Public Use
  Company Number: FR-BAYER-2011-114224

PATIENT
  Age: 75 Year
  Sex: Female

DRUGS (7)
  1. NICARDIPINE HCL [Suspect]
     Indication: HYPERTENSION
     Dosage: 50 MG, BID
     Route: 048
  2. ASPEGIC 325 [Concomitant]
  3. ZOPICLONE [Suspect]
     Indication: INSOMNIA
     Dosage: 1 DF, QD
     Route: 048
  4. NEXAVAR [Suspect]
     Indication: RENAL CANCER
     Dosage: 200 MG, QID
     Route: 048
     Dates: start: 20110201
  5. SOTALOL HCL [Suspect]
     Indication: VENTRICULAR TACHYCARDIA
     Dosage: 80 MG, BID
  6. TANAKAN [Concomitant]
  7. FUROSEMIDE [Suspect]
     Indication: HYPERTENSION
     Dosage: 80 MG, QD
     Route: 048

REACTIONS (3)
  - TORSADE DE POINTES [None]
  - ELECTROCARDIOGRAM QT PROLONGED [None]
  - HEPATITIS ACUTE [None]
